FAERS Safety Report 7011821-3 (Version None)
Quarter: 2010Q3

REPORT INFORMATION
  Report Type: 
  Country: None (occurrence: None)
  Receive Date: 20100923
  Receipt Date: 20090618
  Transmission Date: 20110219
  Serious: Yes (Hospitalization)
  Sender: FDA-Public Use
  Company Number: US-WYE-H09593009

PATIENT
  Sex: Male
  Weight: 68.1 kg

DRUGS (9)
  1. ADVIL COLD AND SINUS [Suspect]
     Dosage: 1 CAPLET X 1
     Route: 048
     Dates: start: 20090601, end: 20090601
  2. AMLODIPINE BESYLATE [Concomitant]
     Dosage: UNKNOWN
     Route: 048
  3. LISINOPRIL [Suspect]
     Indication: HYPERTENSION
     Dosage: UNKNOWN
     Route: 048
     Dates: end: 20090601
  4. ROBITUSSIN CHEST CONGESTION [Suspect]
     Dosage: UNKNOWN
     Route: 048
  5. ISOSORBIDE [Concomitant]
     Dosage: UNKNOWN
     Route: 048
  6. SOTALOL [Concomitant]
     Dosage: UNKNOWN
     Route: 048
  7. LIPITOR [Concomitant]
     Dosage: UNKNOWN
     Route: 048
  8. ACETYLSALICYLIC ACID [Concomitant]
     Dosage: UNKNOWN
     Route: 048
  9. FINASTERIDE [Concomitant]
     Dosage: UNKNOWN
     Route: 048

REACTIONS (1)
  - ANGIOEDEMA [None]
